FAERS Safety Report 9178622 (Version 1)
Quarter: 2013Q1

REPORT INFORMATION
  Report Type: Spontaneous
  Country: US (occurrence: US)
  Receive Date: 20130321
  Receipt Date: 20130321
  Transmission Date: 20140127
  Serious: No
  Sender: FDA-Public Use
  Company Number: US-TEVA-393022USA

PATIENT
  Sex: Female

DRUGS (1)
  1. AZILECT [Suspect]
     Dosage: 9 MONTHS

REACTIONS (4)
  - Myalgia [Unknown]
  - Gait disturbance [Unknown]
  - Arthralgia [Unknown]
  - Mobility decreased [Unknown]
